FAERS Safety Report 16564058 (Version 1)
Quarter: 2019Q3

REPORT INFORMATION
  Report Type: Report from Study
  Country: AT (occurrence: AT)
  Receive Date: 20190712
  Receipt Date: 20190712
  Transmission Date: 20191004
  Serious: Yes (Other)
  Sender: FDA-Public Use
  Company Number: AT-ROCHE-2349247

PATIENT

DRUGS (3)
  1. BENDAMUSTINE [Suspect]
     Active Substance: BENDAMUSTINE
     Indication: CHRONIC LYMPHOCYTIC LEUKAEMIA
     Dosage: 70 - 100 MG/M2 DEPENDING ON THE RESPECTIVE CLINICAL PRACTICE WAS GIVEN INTRAVENOUSLY ON DAYS 2-3 (CY
     Route: 042
  2. OLAPTESED PEGOL [Suspect]
     Active Substance: OLAPTESED PEGOL
     Indication: CHRONIC LYMPHOCYTIC LEUKAEMIA
     Dosage: ONE HOUR PRIOR TO RITUXIMAB IN INTRAPATIENT ESCALATING DOSES OF 1 MG/KG IN CYCLE 1, 2 MG/KG IN CYCLE
     Route: 040
  3. RITUXIMAB. [Suspect]
     Active Substance: RITUXIMAB
     Indication: CHRONIC LYMPHOCYTIC LEUKAEMIA
     Dosage: DAY 1 OF FIRST 28-DAY CYCLE?500 MG/M2 ON DAY 1 OF SUBSEQUENT CYCLES
     Route: 042

REACTIONS (40)
  - Cystitis [Unknown]
  - Lung infection [Unknown]
  - Hyperkalaemia [Unknown]
  - Hypophosphataemia [Unknown]
  - Alanine aminotransferase increased [Unknown]
  - Urinary tract infection [Unknown]
  - Influenza [Unknown]
  - Nausea [Unknown]
  - Hypocalcaemia [Unknown]
  - Intervertebral disc protrusion [Unknown]
  - Infection [Unknown]
  - Pneumonia chlamydial [Unknown]
  - Device related infection [Unknown]
  - Pleural effusion [Unknown]
  - Hyperuricaemia [Unknown]
  - Hypouricaemia [Unknown]
  - Hypotension [Unknown]
  - Hypokalaemia [Unknown]
  - Thrombocytopenia [Unknown]
  - Pneumonia [Unknown]
  - Tumour lysis syndrome [Unknown]
  - Abdominal pain upper [Unknown]
  - Cytokine release syndrome [Unknown]
  - Decreased appetite [Unknown]
  - Peripheral T-cell lymphoma unspecified [Unknown]
  - General physical health deterioration [Unknown]
  - Bacteraemia [Unknown]
  - Parkinson^s disease [Unknown]
  - Hyperphosphataemia [Unknown]
  - Aspartate aminotransferase increased [Unknown]
  - Sinusitis [Unknown]
  - Fatigue [Unknown]
  - Anaemia [Unknown]
  - Dehydration [Unknown]
  - Febrile neutropenia [Unknown]
  - Escherichia sepsis [Unknown]
  - Constipation [Unknown]
  - Hypertension [Unknown]
  - Neutropenia [Unknown]
  - Pyrexia [Unknown]
